FAERS Safety Report 15402203 (Version 1)
Quarter: 2018Q3

REPORT INFORMATION
  Report Type: Other
  Country: ES (occurrence: ES)
  Receive Date: 20180919
  Receipt Date: 20180919
  Transmission Date: 20181010
  Serious: Yes (Life-Threatening, Hospitalization, Other)
  Sender: FDA-Public Use
  Company Number: ES-APOTEX-2018AP020697

PATIENT
  Age: 45 Year
  Sex: Male

DRUGS (9)
  1. DAPAROX                            /00830802/ [Suspect]
     Active Substance: PAROXETINE HYDROCHLORIDE
     Indication: PRODUCT USED FOR UNKNOWN INDICATION
     Dosage: UNK (56 COMPRIMIDOS)
     Route: 048
     Dates: start: 20161123, end: 20161123
  2. LEXATIN                            /00424801/ [Suspect]
     Active Substance: BROMAZEPAM
     Indication: PRODUCT USED FOR UNKNOWN INDICATION
     Dosage: UNK (30 COMPRIMIDOS)
     Route: 048
     Dates: start: 20161123, end: 20161123
  3. DEPRAX                             /00447702/ [Suspect]
     Active Substance: TRAZODONE HYDROCHLORIDE
     Indication: PRODUCT USED FOR UNKNOWN INDICATION
     Dosage: UNK (32 COMPRIMIDOS)
     Route: 048
     Dates: start: 20161123, end: 20161123
  4. DIAZEPAM. [Suspect]
     Active Substance: DIAZEPAM
     Indication: PRODUCT USED FOR UNKNOWN INDICATION
     Dosage: UNK (50 COMPRIMIDOS (TABLETS))
     Route: 048
     Dates: start: 20161123, end: 20161123
  5. ORFIDAL [Suspect]
     Active Substance: LORAZEPAM
     Indication: PRODUCT USED FOR UNKNOWN INDICATION
     Dosage: UNK (50 COMPRIMIDOS)
     Route: 048
     Dates: start: 20161123, end: 20161123
  6. VENLAFAXINA                        /01233801/ [Suspect]
     Active Substance: VENLAFAXINE HYDROCHLORIDE
     Indication: PRODUCT USED FOR UNKNOWN INDICATION
     Dosage: UNK (24 COMPRIMIDOS (TABLETS) DE 75 MG
     Route: 048
     Dates: start: 20161123, end: 20161123
  7. TRANKIMAZIN [Suspect]
     Active Substance: ALPRAZOLAM
     Indication: PRODUCT USED FOR UNKNOWN INDICATION
     Dosage: UNK (10 COMPRIMIDOS (TABLET))
     Route: 048
     Dates: start: 20161123, end: 20161123
  8. IBUPROFEN. [Suspect]
     Active Substance: IBUPROFEN
     Indication: PRODUCT USED FOR UNKNOWN INDICATION
     Dosage: UNK (60 COMPRIMIDOS (60 TABLETS))
     Route: 048
     Dates: start: 20161123, end: 20161123
  9. PARACETAMOL [Suspect]
     Active Substance: ACETAMINOPHEN
     Indication: PRODUCT USED FOR UNKNOWN INDICATION
     Dosage: UNK (80 COMPRIMIDOS)
     Route: 065
     Dates: start: 20161123, end: 20161123

REACTIONS (2)
  - Altered state of consciousness [Recovered/Resolved]
  - Suicide attempt [Recovered/Resolved]

NARRATIVE: CASE EVENT DATE: 20161123
